FAERS Safety Report 5836343-4 (Version None)
Quarter: 2008Q3

REPORT INFORMATION
  Report Type: 
  Country: None (occurrence: None)
  Receive Date: 20080801
  Receipt Date: 20080513
  Transmission Date: 20090109
  Serious: Yes (Other)
  Sender: FDA-Public Use
  Company Number: PHEH2007US15548

PATIENT
  Sex: Female

DRUGS (3)
  1. EXELON [Suspect]
     Dosage: , TRANSDERMAL
     Route: 062
     Dates: start: 20071201
  2. ARIMIDEX [Concomitant]
  3. NEURONTIN [Concomitant]

REACTIONS (4)
  - ABDOMINAL PAIN UPPER [None]
  - DIVERTICULITIS [None]
  - HAEMORRHOIDS [None]
  - RECTAL HAEMORRHAGE [None]
